FAERS Safety Report 8884455 (Version 1)
Quarter: 2012Q4

REPORT INFORMATION
  Report Type: 
  Country: CA (occurrence: CA)
  Receive Date: 20121104
  Receipt Date: 20121104
  Transmission Date: 20130627
  Serious: Yes (Other)
  Sender: FDA-Public Use
  Company Number: PHHY2011CA53498

PATIENT
  Age: 56 Year
  Sex: Female

DRUGS (3)
  1. ACLASTA/ZOLEDRONATE [Suspect]
     Indication: OSTEOPOROSIS
     Dosage: 5 mg, annually
     Route: 042
     Dates: start: 20090204
  2. VITAMIN D [Concomitant]
     Dosage: 2000 IU/day
  3. CALCIUM [Concomitant]
     Dosage: 650 mg/day

REACTIONS (3)
  - Fall [Unknown]
  - Rib fracture [Recovered/Resolved]
  - Pain [Recovered/Resolved]
